FAERS Safety Report 10782786 (Version 2)
Quarter: 2015Q1

REPORT INFORMATION
  Report Type: Spontaneous
  Country: US (occurrence: US)
  Receive Date: 20150210
  Receipt Date: 20150220
  Transmission Date: 20150721
  Serious: Yes (Other)
  Sender: FDA-Public Use
  Company Number: US-GILEAD-2015-0135784

PATIENT
  Age: 58 Year
  Sex: Male

DRUGS (10)
  1. CALCIUM CARBONATE/VITAMIN D3 [Concomitant]
  2. OLANZAPINE. [Concomitant]
     Active Substance: OLANZAPINE
  3. SOVALDI [Suspect]
     Active Substance: SOFOSBUVIR
     Indication: HEPATITIS C
     Dosage: 400 MG, QD
     Route: 048
     Dates: start: 20140812, end: 20141107
  4. MINERAL OIL. [Concomitant]
     Active Substance: MINERAL OIL
  5. RIBAVIRIN. [Suspect]
     Active Substance: RIBAVIRIN
     Indication: HEPATITIS C
     Dosage: 1000 MG, UNK
     Route: 048
     Dates: start: 20140812, end: 20150127
  6. LORAZEPAM. [Concomitant]
     Active Substance: LORAZEPAM
  7. IBUPROFEN. [Concomitant]
     Active Substance: IBUPROFEN
  8. DIPHENHYDRAMINE [Concomitant]
     Active Substance: DIPHENHYDRAMINE
  9. POLYVINYL ALCOHOL [Concomitant]
     Active Substance: POLYVINYL ALCOHOL
  10. VALPROIC ACID. [Concomitant]
     Active Substance: VALPROIC ACID

REACTIONS (2)
  - Hepatitis C [Unknown]
  - Drug ineffective [Unknown]

NARRATIVE: CASE EVENT DATE: 20150127
